FAERS Safety Report 5632598-X (Version None)
Quarter: 2008Q1

REPORT INFORMATION
  Report Type: 
  Country: None (occurrence: None)
  Receive Date: 20080220
  Receipt Date: 20080208
  Transmission Date: 20080703
  Serious: Yes (Other)
  Sender: FDA-Public Use
  Company Number: US-PFIZER INC-2007107059

PATIENT
  Sex: Female
  Weight: 75 kg

DRUGS (7)
  1. CHANTIX [Suspect]
     Indication: SMOKING CESSATION THERAPY
     Dates: start: 20071212, end: 20071216
  2. LISINOPRIL [Concomitant]
     Dosage: TEXT:40 MG
  3. CARDIZEM [Concomitant]
     Dosage: TEXT:240 MG
  4. PROZAC [Concomitant]
     Indication: DEPRESSION
     Dosage: TEXT:20MG
  5. PREMARIN [Concomitant]
     Dosage: TEXT:1.25MG
  6. VYTORIN [Concomitant]
  7. VITAMIN CAP [Concomitant]

REACTIONS (8)
  - DEPRESSION [None]
  - FALL [None]
  - FATIGUE [None]
  - ILL-DEFINED DISORDER [None]
  - MYALGIA [None]
  - NAUSEA [None]
  - SOMNOLENCE [None]
  - TINNITUS [None]
